FAERS Safety Report 6143675-1 (Version None)
Quarter: 2009Q2

REPORT INFORMATION
  Report Type: 
  Country: None (occurrence: None)
  Receive Date: 20090403
  Receipt Date: 20090323
  Transmission Date: 20091009
  Serious: Yes (Death, Other)
  Sender: FDA-Public Use
  Company Number: NL-WYE-H08805809

PATIENT
  Age: 68 Year
  Sex: Male

DRUGS (4)
  1. PANTOPRAZOLE SODIUM [Suspect]
     Indication: DUODENAL ULCER HAEMORRHAGE
     Dosage: UNKNOWN
  2. OXALIPLATIN [Concomitant]
     Indication: COLON CANCER METASTATIC
     Dosage: UNKNOWN
  3. BEVACIZUMAB [Concomitant]
     Indication: COLON CANCER METASTATIC
     Dosage: UNKNOWN
  4. CAPECITABINE [Concomitant]
     Indication: COLON CANCER METASTATIC
     Dosage: UNKNOWN

REACTIONS (12)
  - ALPHA HAEMOLYTIC STREPTOCOCCAL INFECTION [None]
  - BACTERIAL INFECTION [None]
  - CONCOMITANT DISEASE PROGRESSION [None]
  - FUSOBACTERIUM INFECTION [None]
  - GASTROENTERITIS STAPHYLOCOCCAL [None]
  - GASTROINTESTINAL INFECTION [None]
  - HAEMOGLOBIN DECREASED [None]
  - HELICOBACTER INFECTION [None]
  - LACTOBACILLUS INFECTION [None]
  - PLATELET COUNT DECREASED [None]
  - PORTAL VEIN PHLEBITIS [None]
  - THROMBOPHLEBITIS SEPTIC [None]
